FAERS Safety Report 16457585 (Version 1)
Quarter: 2019Q2

REPORT INFORMATION
  Report Type: Spontaneous
  Country: US (occurrence: US)
  Receive Date: 20190510
  Receipt Date: 20190510
  Transmission Date: 20190711
  Serious: Yes (Death)
  Sender: FDA-Public Use
  Company Number: None

PATIENT
  Age: 77 Year
  Sex: Male

DRUGS (1)
  1. TADALAFIL 20MG [Suspect]
     Active Substance: TADALAFIL
     Route: 048
     Dates: start: 20180222

REACTIONS (1)
  - Death [None]
